FAERS Safety Report 5057045-0 (Version None)
Quarter: 2006Q2

REPORT INFORMATION
  Report Type: 
  Country: None (occurrence: None)
  Receive Date: 20060622
  Receipt Date: 20060424
  Transmission Date: 20061013
  Serious: Yes (Other)
  Sender: FDA-Public Use
  Company Number: US-JNJFOC-20060405830

PATIENT
  Age: 46 Year
  Sex: Female

DRUGS (1)
  1. DURAGESIC-100 [Suspect]
     Indication: PAIN
     Dosage: 100 UG/HR, 1 IN 72 HOUR, TRANSDERMAL
     Route: 062
     Dates: start: 20041201

REACTIONS (4)
  - APPLICATION SITE HYPERSENSITIVITY [None]
  - CYANOSIS [None]
  - FEELING ABNORMAL [None]
  - MALAISE [None]
